FAERS Safety Report 19328319 (Version 1)
Quarter: 2021Q2

REPORT INFORMATION
  Report Type: Report from Study
  Country: DE (occurrence: DE)
  Receive Date: 20210528
  Receipt Date: 20210528
  Transmission Date: 20210717
  Serious: Yes (Other)
  Sender: FDA-Public Use
  Company Number: DE-TAIHO ONCOLOGY  INC-IM-2020-00980

PATIENT
  Age: 56 Year
  Sex: Male
  Weight: 92 kg

DRUGS (1)
  1. LONSURF [Suspect]
     Active Substance: TIPIRACIL HYDROCHLORIDE\TRIFLURIDINE
     Indication: ADENOCARCINOMA OF COLON
     Dosage: 35 MG/M2, BID
     Route: 048
     Dates: start: 20190304, end: 20190712

REACTIONS (7)
  - Metastases to liver [Unknown]
  - Metastases to peritoneum [Unknown]
  - Asthenia [Recovered/Resolved]
  - Metastases to lung [Unknown]
  - Metastases to lymph nodes [Unknown]
  - Fatigue [Recovered/Resolved]
  - Drug ineffective [Recovered/Resolved]

NARRATIVE: CASE EVENT DATE: 20190329
